FAERS Safety Report 25645864 (Version 1)
Quarter: 2025Q3

REPORT INFORMATION
  Report Type: Spontaneous
  Country: US (occurrence: US)
  Receive Date: 20250805
  Receipt Date: 20250805
  Transmission Date: 20251021
  Serious: No
  Sender: MYLAN
  Company Number: US-MYLANLABS-2025M1066078

PATIENT
  Sex: Female
  Weight: 117.93 kg

DRUGS (12)
  1. ALPRAZOLAM [Suspect]
     Active Substance: ALPRAZOLAM
     Indication: Panic attack
  2. ALPRAZOLAM [Suspect]
     Active Substance: ALPRAZOLAM
     Route: 048
  3. ALPRAZOLAM [Suspect]
     Active Substance: ALPRAZOLAM
     Route: 048
  4. ALPRAZOLAM [Suspect]
     Active Substance: ALPRAZOLAM
  5. VERAPAMIL [Concomitant]
     Active Substance: VERAPAMIL HYDROCHLORIDE
  6. VERAPAMIL [Concomitant]
     Active Substance: VERAPAMIL HYDROCHLORIDE
     Route: 065
  7. VERAPAMIL [Concomitant]
     Active Substance: VERAPAMIL HYDROCHLORIDE
     Route: 065
  8. VERAPAMIL [Concomitant]
     Active Substance: VERAPAMIL HYDROCHLORIDE
  9. LOSARTAN [Concomitant]
     Active Substance: LOSARTAN
  10. LOSARTAN [Concomitant]
     Active Substance: LOSARTAN
     Route: 065
  11. LOSARTAN [Concomitant]
     Active Substance: LOSARTAN
     Route: 065
  12. LOSARTAN [Concomitant]
     Active Substance: LOSARTAN

REACTIONS (14)
  - Chest pain [Unknown]
  - Periorbital swelling [Unknown]
  - Illness [Unknown]
  - Dyspnoea [Unknown]
  - Hyperhidrosis [Unknown]
  - Lip swelling [Unknown]
  - Swelling face [Unknown]
  - Visual impairment [Unknown]
  - Wheezing [Unknown]
  - Nausea [Unknown]
  - Headache [Unknown]
  - Dizziness [Unknown]
  - Off label use [Unknown]
  - Drug ineffective [Unknown]
